FAERS Safety Report 13601784 (Version 1)
Quarter: 2017Q2

REPORT INFORMATION
  Report Type: Spontaneous
  Country: US (occurrence: US)
  Receive Date: 20170601
  Receipt Date: 20170601
  Transmission Date: 20170830
  Serious: Yes (Other)
  Sender: FDA-Public Use
  Company Number: US-TEVA-773825ACC

PATIENT
  Age: 28 Year
  Sex: Female
  Weight: 93 kg

DRUGS (1)
  1. PARAGARD T 380A [Suspect]
     Active Substance: COPPER
     Indication: CONTRACEPTION
     Dates: start: 20170412, end: 20170522

REACTIONS (5)
  - Abdominal pain [Unknown]
  - Vaginal haemorrhage [Unknown]
  - Device dislocation [Recovered/Resolved]
  - White blood cell count increased [Unknown]
  - Back pain [Unknown]

NARRATIVE: CASE EVENT DATE: 20170521
